FAERS Safety Report 7986546-8 (Version None)
Quarter: 2011Q4

REPORT INFORMATION
  Report Type: 
  Country: None (occurrence: None)
  Receive Date: 20111216
  Receipt Date: 20111213
  Transmission Date: 20120403
  Serious: Yes (Hospitalization, Other)
  Sender: FDA-Public Use
  Company Number: ES-PFIZER INC-2011304206

PATIENT
  Age: 30 Year
  Sex: Female

DRUGS (1)
  1. VENLAFAXINE HCL [Suspect]

REACTIONS (2)
  - STRESS CARDIOMYOPATHY [None]
  - OVERDOSE [None]
